FAERS Safety Report 20577041 (Version 1)
Quarter: 2022Q1

REPORT INFORMATION
  Report Type: Spontaneous
  Country: US (occurrence: None)
  Receive Date: 20220309
  Receipt Date: 20220309
  Transmission Date: 20220423
  Serious: Yes (Other)
  Sender: FDA-Public Use
  Company Number: None

PATIENT
  Sex: Male

DRUGS (1)
  1. BOTOX [Suspect]
     Active Substance: ONABOTULINUMTOXINA
     Indication: Hemiplegia
     Dosage: OTHER FREQUENCY : EVERY 90 DAYS; TO LEFT UPPER LIMB?
     Route: 030
     Dates: start: 20210603

REACTIONS (1)
  - Cerebrovascular accident [None]
